FAERS Safety Report 6429358-9 (Version None)
Quarter: 2009Q4

REPORT INFORMATION
  Report Type: 
  Country: None (occurrence: None)
  Receive Date: 20091105
  Receipt Date: 20090430
  Transmission Date: 20100525
  Serious: No
  Sender: FDA-Public Use
  Company Number: US-ABBOTT-09P-163-0570927-00

PATIENT
  Sex: Male
  Weight: 136.2 kg

DRUGS (6)
  1. KALETRA [Suspect]
     Indication: HIV INFECTION
     Dosage: FORM STRENGTH: 200/50 MG MG PER TAB
     Dates: start: 20090201
  2. TRUVADA [Concomitant]
     Indication: HIV INFECTION
  3. TRICOR [Concomitant]
     Indication: BLOOD CHOLESTEROL INCREASED
  4. CRESTOR [Concomitant]
     Indication: BLOOD CHOLESTEROL INCREASED
  5. ACTOS [Concomitant]
     Indication: DIABETES MELLITUS
  6. LOMOTIL [Concomitant]
     Indication: DIARRHOEA

REACTIONS (1)
  - HEADACHE [None]
